FAERS Safety Report 9009717 (Version 1)
Quarter: 2013Q1

REPORT INFORMATION
  Report Type: Spontaneous
  Country: US (occurrence: US)
  Receive Date: 20130110
  Receipt Date: 20130110
  Transmission Date: 20140127
  Serious: Yes (Hospitalization)
  Sender: FDA-Public Use
  Company Number: US-009507513-1301USA001594

PATIENT
  Age: 35 Year
  Sex: Male

DRUGS (3)
  1. MONTELUKAST SODIUM [Suspect]
     Indication: ASTHMA
  2. OMEPRAZOLE [Suspect]
     Dosage: 20 MG, QD
     Route: 048
  3. CORTICOSTEROIDS (UNSPECIFIED) [Concomitant]

REACTIONS (3)
  - Hepatitis cholestatic [Unknown]
  - Haemolytic anaemia [Unknown]
  - Hepatitis [Unknown]
